FAERS Safety Report 12934536 (Version 1)
Quarter: 2016Q4

REPORT INFORMATION
  Report Type: Spontaneous
  Country: US (occurrence: US)
  Receive Date: 20161111
  Receipt Date: 20161111
  Transmission Date: 20170207
  Serious: No
  Sender: FDA-Public Use
  Company Number: US-GREER LABORATORIES, INC.-1059469

PATIENT
  Age: 16 Year
  Sex: Female

DRUGS (53)
  1. POLLENS - WEEDS AND GARDEN PLANTS, SAGEBRUSH, MUGWORT ARTEMISIA VULGARIS [Suspect]
     Active Substance: ARTEMISIA VULGARIS POLLEN
     Route: 058
     Dates: start: 20161005
  2. POLLENS - TREES, GUM, SWEET LIQUIDAMBAR STYRACIFLUA [Suspect]
     Active Substance: LIQUIDAMBAR STYRACIFLUA POLLEN
     Route: 058
     Dates: start: 20161005
  3. POLLENS - TREES, SYCAMORE, AMERICAN (EASTERN) PLATANUS OCCIDENTALLIS [Suspect]
     Active Substance: PLATANUS OCCIDENTALIS POLLEN
     Route: 058
     Dates: start: 20161005
  4. POLLENS - TREES, GS HICKORY-PECAN MIX [Suspect]
     Active Substance: CARYA ILLINOINENSIS POLLEN\CARYA OVATA POLLEN
     Route: 058
     Dates: start: 20161005
  5. ANIMAL ALLERGENS, DOG EPITHELIA, CANIS FAMILIARIS [Suspect]
     Active Substance: CANIS LUPUS FAMILIARIS SKIN
     Route: 058
     Dates: start: 20161005
  6. POLLENS - TREES, POPLAR, WHITE, POPULUS ALBA [Suspect]
     Active Substance: POPULUS ALBA POLLEN
     Route: 058
     Dates: start: 20161005
  7. POLLENS - WEEDS AND GARDEN PLANTS, BACCHARIS, BACCHARIS SPP. [Suspect]
     Active Substance: ALLERGENIC EXTRACTS
     Route: 058
     Dates: start: 20161005
  8. POLLENS - TREES, BAYBERRY/WAX MYRTLE, MORELLA CERIFERA [Suspect]
     Active Substance: MORELLA CERIFERA POLLEN
     Route: 058
     Dates: start: 20161005
  9. POLLENS - TREES, COTTONWOOD, COMMON POPULUS DELTOIDES [Suspect]
     Active Substance: POPULUS DELTOIDES POLLEN
     Route: 058
     Dates: start: 20161005
  10. POLLENS - GRASSES, BAHIA GRASS PASPALUM NOTATUM [Suspect]
     Active Substance: PASPALUM NOTATUM POLLEN
     Route: 058
     Dates: start: 20161005
  11. POLLENS - GRASSES, JOHNSON GRASS SORGHUM HALEPENSE [Suspect]
     Active Substance: SORGHUM HALEPENSE POLLEN
     Route: 058
     Dates: start: 20161005
  12. ANIMAL ALLERGENS, GS MIXED FEATHERS [Suspect]
     Active Substance: ANAS PLATYRHYNCHOS FEATHER\ANSER ANSER FEATHER\GALLUS GALLUS FEATHER
     Route: 058
     Dates: start: 20161005
  13. INSECTS (WHOLE BODY) COCKROACH MIX [Suspect]
     Active Substance: BLATELLA GERMANICA\PERIPLANETA AMERICANA
     Route: 058
     Dates: start: 20161005
  14. STANDARDIZED TIMOTHY GRASS [Suspect]
     Active Substance: PHLEUM PRATENSE POLLEN
     Route: 058
     Dates: start: 20161005
  15. POLLENS - WEEDS AND GARDEN PLANTS, RAGWEED, MIXED AMBROSIA [Suspect]
     Active Substance: AMBROSIA ARTEMISIIFOLIA POLLEN\AMBROSIA TRIFIDA POLLEN
     Route: 058
     Dates: start: 20161005
  16. MIXTURE OF STANDARDIZED MITES [Suspect]
     Active Substance: DERMATOPHAGOIDES FARINAE\DERMATOPHAGOIDES PTERONYSSINUS
     Route: 058
     Dates: start: 20161005
  17. POLLENS - WEEDS AND GARDEN PLANTS, LAMBS QUARTERS CHENOPODIUM ALBUM [Suspect]
     Active Substance: CHENOPODIUM ALBUM POLLEN
     Route: 058
     Dates: start: 20161005
  18. POLLENS - TREES, ELM, AMERICAN ULMUS AMERICANA [Suspect]
     Active Substance: ULMUS AMERICANA POLLEN
     Route: 058
     Dates: start: 20161005
  19. ASH MIXTURE [Suspect]
     Active Substance: FRAXINUS AMERICANA POLLEN\FRAXINUS PENNSYLVANICA POLLEN
     Route: 058
     Dates: start: 20161005
  20. MOLDS, RUSTS AND SMUTS, DRECHSLERA SPICIFERA [Suspect]
     Active Substance: COCHLIOBOLUS SPICIFER
     Route: 058
     Dates: start: 20161005
  21. MOLDS, RUSTS AND SMUTS, MUCOR CIRCINELLOIDES F LUSITANICUS [Suspect]
     Active Substance: MUCOR CIRCINELLOIDES F. LUSITANICUS
     Route: 058
     Dates: start: 20161005
  22. POLLENS - WEEDS, DOCK/SORREL MIX [Suspect]
     Active Substance: RUMEX ACETOSELLA POLLEN\RUMEX CRISPUS POLLEN
     Indication: MULTIPLE ALLERGIES
     Route: 058
     Dates: start: 20161005
  23. POLLENS - WEEDS AND GARDEN PLANTS, FIREBUSH (KOCHIA), KOCHIA SCOPARIA [Suspect]
     Active Substance: BASSIA SCOPARIA POLLEN
     Route: 058
     Dates: start: 20161005
  24. POLLENS - WEEDS AND GARDEN PLANTS, NETTLE URTICA DIOICA [Suspect]
     Active Substance: URTICA DIOICA POLLEN
     Route: 058
     Dates: start: 20161005
  25. POLLENS - TREES, GS PINE MIX [Suspect]
     Active Substance: PINUS ECHINATA POLLEN\PINUS STROBUS POLLEN\PINUS TAEDA POLLEN
     Route: 058
     Dates: start: 20161005
  26. POLLENS - WEEDS AND GARDEN PLANTS, NETTLE URTICA DIOICA [Suspect]
     Active Substance: URTICA DIOICA POLLEN
     Route: 058
     Dates: start: 20161005
  27. POLLENS - WEEDS AND GARDEN PLANTS, PLANTAIN, ENGLISH PLANTAGO LANCEOLATA [Suspect]
     Active Substance: PLANTAGO LANCEOLATA POLLEN
     Route: 058
     Dates: start: 20161005
  28. POLLENS - TREES, HACKBERRY CELTIS OCCIDENTALIS [Suspect]
     Active Substance: CELTIS OCCIDENTALIS POLLEN
     Route: 058
     Dates: start: 20161005
  29. POLLENS - TREES, GS EASTERN OAK MIX [Suspect]
     Active Substance: QUERCUS ALBA POLLEN\QUERCUS RUBRA POLLEN\QUERCUS VELUTINA POLLEN
     Route: 058
     Dates: start: 20161005
  30. POLLENS - WEEDS AND GARDEN PLANTS, SAGEBRUSH, ARTEMISIA TRIDENTATA [Suspect]
     Active Substance: ARTEMISIA TRIDENTATA POLLEN
     Route: 058
     Dates: start: 20161005
  31. POLLENS - TREES, ALDER, HAZEL, ALNUS SERRULATA [Suspect]
     Active Substance: ALNUS SERRULATA POLLEN
     Route: 058
     Dates: start: 20161005
  32. POLLENS - TREES, GS BIRCH MIX [Suspect]
     Active Substance: BETULA LENTA POLLEN\BETULA NIGRA POLLEN\BETULA POPULIFOLIA POLLEN
     Route: 058
     Dates: start: 20161005
  33. POLLENS - TREES, WILLOW, BLACK SALIX NIGRA [Suspect]
     Active Substance: SALIX NIGRA POLLEN
     Route: 058
     Dates: start: 20161005
  34. POLLENS - TREES, CYPRESS, BALD TAXODIUM DISTICHUM [Suspect]
     Active Substance: TAXODIUM DISTICHUM POLLEN
     Route: 058
     Dates: start: 20161005
  35. MOLDS, RUSTS AND SMUTS, EPICOCCUM NIGRUM [Suspect]
     Active Substance: EPICOCCUM NIGRUM
     Route: 058
     Dates: start: 20161005
  36. POLLENS - WEEDS AND GARDEN PLANTS, MARSHELDER, TRUE/ROUGH, IVA ANNUA [Suspect]
     Active Substance: IVA ANNUA POLLEN
     Route: 058
     Dates: start: 20161005
  37. POLLENS - WEEDS AND GARDEN PLANTS, DOG FENNEL EUPATORIUM CAPILLIFOLIUM [Suspect]
     Active Substance: EUPATORIUM CAPILLIFOLIUM POLLEN
     Route: 058
     Dates: start: 20161005
  38. POLLENS - TREES, EUCALYPTUS (BLUE GUM) EUCALYPTUS GLOBULUS [Suspect]
     Active Substance: EUCALYPTUS GLOBULUS POLLEN
     Route: 058
     Dates: start: 20161005
  39. POLLENS - TREES, MULBERRY, WHITE, MORUS ALBA [Suspect]
     Active Substance: MORUS ALBA POLLEN
     Route: 058
     Dates: start: 20161005
  40. POLLENS - TREES, BOXELDER/MAPLE MIX [Suspect]
     Active Substance: ACER NEGUNDO POLLEN\ACER RUBRUM POLLEN\ACER SACCHARUM POLLEN
     Route: 058
     Dates: start: 20161005
  41. MOLDS, RUSTS AND SMUTS, BIPOLARIS SOROKINIANA [Suspect]
     Active Substance: COCHLIOBOLUS SATIVUS
     Route: 058
     Dates: start: 20161005
  42. STANDARDIZED CAT HAIR [Suspect]
     Active Substance: FELIS CATUS HAIR
     Route: 058
     Dates: start: 20161005
  43. MOLDS, RUSTS AND SMUTS, CANDIDA ALBICANS [Suspect]
     Active Substance: CANDIDA ALBICANS
     Route: 058
     Dates: start: 20161005
  44. MOLDS, RUSTS AND SMUTS, PHOMA BETAE [Suspect]
     Active Substance: PLEOSPORA BETAE
     Route: 058
     Dates: start: 20161005
  45. MOLDS, RUSTS AND SMUTS, AUREOBASIDIUM PULLULANS [Suspect]
     Active Substance: AUREOBASIDIUM PULLULANS VAR. PULLUTANS
     Route: 058
     Dates: start: 20161005
  46. POLLENS - TREES, CEDAR, RED JUNIPERUS VIRGINIANA [Suspect]
     Active Substance: JUNIPERUS VIRGINIANA POLLEN
     Route: 058
     Dates: start: 20161005
  47. STANDARDIZED BERMUDA GRASS [Suspect]
     Active Substance: CYNODON DACTYLON POLLEN
     Route: 058
     Dates: start: 20161005
  48. STANDARDIZED PERENNIAL RYE GRASS [Suspect]
     Active Substance: LOLIUM PERENNE POLLEN
     Route: 058
     Dates: start: 20161005
  49. POLLENS - FLOWERS, SUNFLOWER, HELIANTHUS ANNUUS [Suspect]
     Active Substance: HELIANTHUS ANNUUS POLLEN
     Route: 058
     Dates: start: 20161005
  50. RED MULBERRY POLLEN [Suspect]
     Active Substance: MORUS RUBRA POLLEN
     Route: 058
     Dates: start: 20161005
  51. MOLDS, RUSTS AND SMUTS, ALTERNARIA TENUIS (ALTERNATA) [Suspect]
     Active Substance: ALTERNARIA ALTERNATA
     Route: 058
     Dates: start: 20161005
  52. MOLDS, RUSTS AND SMUTS, ASPERGILLUS FUMIGATUS [Suspect]
     Active Substance: ASPERGILLUS FUMIGATUS
     Route: 058
     Dates: start: 20161005
  53. MOLDS, RUSTS AND SMUTS, FUSARIUM MONILIFORME [Suspect]
     Active Substance: GIBBERELLA FUJIKUROI
     Route: 058
     Dates: start: 20161005

REACTIONS (5)
  - Urticaria [Recovered/Resolved]
  - Urticaria [Unknown]
  - Blood pressure decreased [Recovered/Resolved]
  - Heart rate increased [Recovered/Resolved]
  - Flushing [Recovered/Resolved]

NARRATIVE: CASE EVENT DATE: 20161005
